FAERS Safety Report 7862276-8 (Version None)
Quarter: 2011Q4

REPORT INFORMATION
  Report Type: 
  Country: None (occurrence: None)
  Receive Date: 20111027
  Receipt Date: 20101104
  Transmission Date: 20120403
  Serious: No
  Sender: FDA-Public Use
  Company Number: US-AMGEN-USASP2010003574

PATIENT
  Age: 65 Year
  Sex: Male

DRUGS (3)
  1. REMICADE [Concomitant]
     Dosage: UNK
  2. ENBREL [Suspect]
     Indication: PSORIATIC ARTHROPATHY
  3. ENBREL [Suspect]
     Indication: PSORIASIS
     Dosage: 50 MG, QWK
     Dates: start: 20041001

REACTIONS (3)
  - DRUG INTERACTION [None]
  - PSORIASIS [None]
  - HYPERSENSITIVITY [None]
